FAERS Safety Report 10700275 (Version 1)
Quarter: 2015Q1

REPORT INFORMATION
  Report Type: Spontaneous
  Country: US (occurrence: None)
  Receive Date: 20150107
  Receipt Date: 20150107
  Transmission Date: 20150721
  Serious: Yes (Congenital Anomaly)
  Sender: FDA-Public Use
  Company Number: 2694087

PATIENT
  Sex: Male
  Weight: .91 kg

DRUGS (2)
  1. PACLITAXEL. [Suspect]
     Active Substance: PACLITAXEL
     Indication: PRODUCT USED FOR UNKNOWN INDICATION
     Route: 064
  2. CISPLATIN. [Suspect]
     Active Substance: CISPLATIN
     Indication: PRODUCT USED FOR UNKNOWN INDICATION
     Route: 064

REACTIONS (7)
  - Asperger^s disorder [None]
  - Tourette^s disorder [None]
  - Speech disorder developmental [None]
  - Maternal drugs affecting foetus [None]
  - Jaundice [None]
  - Dyslexia [None]
  - Hyperbilirubinaemia [None]
